FAERS Safety Report 8145399-8 (Version None)
Quarter: 2012Q1

REPORT INFORMATION
  Report Type: 
  Country: None (occurrence: None)
  Receive Date: 20120217
  Receipt Date: 20120209
  Transmission Date: 20120608
  Serious: Yes (Disabling)
  Sender: FDA-Public Use
  Company Number: BR-ASTRAZENECA-2011SE44789

PATIENT
  Age: 84 Year
  Sex: Female
  Weight: 58 kg

DRUGS (11)
  1. ICTUS [Concomitant]
     Indication: DIABETES MELLITUS
     Route: 048
  2. TRILEPTAL [Concomitant]
     Indication: DEMENTIA ALZHEIMER'S TYPE
     Route: 048
  3. CYMBALTA [Concomitant]
     Indication: DEMENTIA ALZHEIMER'S TYPE
     Route: 048
  4. SEROQUEL [Suspect]
     Route: 048
  5. ALPRAZ [Concomitant]
     Indication: DEMENTIA ALZHEIMER'S TYPE
     Route: 048
  6. SEROQUEL [Suspect]
     Route: 048
  7. SEROQUEL [Suspect]
     Route: 048
  8. DIGOXIN [Concomitant]
     Indication: ANGINA PECTORIS
     Route: 048
  9. LEVOTHYROXINE SODIUM [Concomitant]
     Indication: HYPOTHYROIDISM
     Route: 048
  10. SEROQUEL [Suspect]
     Indication: DEMENTIA ALZHEIMER'S TYPE
     Route: 048
  11. EXELON [Concomitant]
     Indication: DEMENTIA ALZHEIMER'S TYPE
     Route: 048

REACTIONS (5)
  - FALL [None]
  - RESTLESSNESS [None]
  - PELVIC FRACTURE [None]
  - INSOMNIA [None]
  - OFF LABEL USE [None]
